FAERS Safety Report 13466076 (Version 1)
Quarter: 2017Q2

REPORT INFORMATION
  Report Type: Spontaneous
  Country: US (occurrence: US)
  Receive Date: 20170420
  Receipt Date: 20170420
  Transmission Date: 20170830
  Serious: No
  Sender: FDA-Public Use
  Company Number: None

PATIENT
  Age: 49 Year
  Sex: Female

DRUGS (1)
  1. SOVALDI [Suspect]
     Active Substance: SOFOSBUVIR
     Indication: HEPATITIS VIRAL
     Route: 048
     Dates: start: 20170310

REACTIONS (3)
  - Weight decreased [None]
  - Amnesia [None]
  - Headache [None]

NARRATIVE: CASE EVENT DATE: 20170312
